FAERS Safety Report 18284573 (Version 1)
Quarter: 2020Q3

REPORT INFORMATION
  Report Type: Report from Study
  Country: FR (occurrence: FR)
  Receive Date: 20200918
  Receipt Date: 20200918
  Transmission Date: 20201105
  Serious: Yes (Other)
  Sender: FDA-Public Use
  Company Number: FR-TEVA-2020-FR-1830575

PATIENT
  Age: 73 Year
  Sex: Female
  Weight: 73 kg

DRUGS (14)
  1. BENDAMUSTINE HYDROCHLORIDE. [Suspect]
     Active Substance: BENDAMUSTINE HYDROCHLORIDE
     Dosage: ONCE DAILY (CYCLE 2)
     Route: 042
     Dates: start: 20200815, end: 20200815
  2. POLATUZUMAB VEDOTIN. [Suspect]
     Active Substance: POLATUZUMAB VEDOTIN
     Indication: DIFFUSE LARGE B-CELL LYMPHOMA
     Dosage: ONCE DAILY (CYCLE 1)
     Route: 042
     Dates: start: 20200702, end: 20200702
  3. POLATUZUMAB VEDOTIN. [Suspect]
     Active Substance: POLATUZUMAB VEDOTIN
     Dosage: ONCE DAILY (CYCLE 2)
     Route: 042
     Dates: start: 20200814, end: 20200814
  4. FOLINORAL [Concomitant]
     Active Substance: LEUCOVORIN CALCIUM
     Indication: PRODUCT USED FOR UNKNOWN INDICATION
     Route: 048
  5. ACTISKENAN [Concomitant]
     Active Substance: MORPHINE SULFATE
     Indication: PRODUCT USED FOR UNKNOWN INDICATION
     Route: 048
     Dates: start: 20200702, end: 20200728
  6. BENDAMUSTINE HYDROCHLORIDE. [Suspect]
     Active Substance: BENDAMUSTINE HYDROCHLORIDE
     Indication: DIFFUSE LARGE B-CELL LYMPHOMA
     Dosage: ONCE DAILY (CYCLE 1)
     Route: 042
     Dates: start: 20200702, end: 20200702
  7. RITUXIMAB. [Suspect]
     Active Substance: RITUXIMAB
     Dosage: ONCE DAILY (CYCLE 2)
     Route: 042
     Dates: start: 20200814, end: 20200814
  8. BACTRIM [Concomitant]
     Active Substance: SULFAMETHOXAZOLE\TRIMETHOPRIM
     Indication: PRODUCT USED FOR UNKNOWN INDICATION
     Dosage: 0.33/WEEK.
     Route: 048
  9. ZELITREX [Concomitant]
     Active Substance: VALACYCLOVIR HYDROCHLORIDE
     Indication: PRODUCT USED FOR UNKNOWN INDICATION
     Route: 048
  10. BENDAMUSTINE HYDROCHLORIDE. [Suspect]
     Active Substance: BENDAMUSTINE HYDROCHLORIDE
     Dosage: ONCE DAILY (CYCLE 2)
     Route: 042
     Dates: start: 20200728, end: 20200728
  11. RITUXIMAB. [Suspect]
     Active Substance: RITUXIMAB
     Dosage: ONCE DAILY (CYCLE 2)
     Route: 042
     Dates: start: 20200728, end: 20200728
  12. POLATUZUMAB VEDOTIN. [Suspect]
     Active Substance: POLATUZUMAB VEDOTIN
     Dosage: ONCE DAILY (CYCLE 2)
     Route: 042
     Dates: start: 20200728, end: 20200728
  13. RITUXIMAB. [Suspect]
     Active Substance: RITUXIMAB
     Indication: DIFFUSE LARGE B-CELL LYMPHOMA
     Dosage: ONCE DAILY (CYCLE 1)
     Route: 042
     Dates: start: 20200702, end: 20200702
  14. SKENAN [Concomitant]
     Active Substance: MORPHINE SULFATE
     Indication: PRODUCT USED FOR UNKNOWN INDICATION
     Route: 048
     Dates: start: 20200702, end: 20200728

REACTIONS (4)
  - Hypotension [Recovered/Resolved]
  - Product use in unapproved indication [Unknown]
  - Oxygen saturation decreased [Recovered/Resolved]
  - Pyrexia [Recovered/Resolved]

NARRATIVE: CASE EVENT DATE: 20200702
